FAERS Safety Report 18672751 (Version 1)
Quarter: 2020Q4

REPORT INFORMATION
  Report Type: Spontaneous
  Country: GB (occurrence: GB)
  Receive Date: 20201228
  Receipt Date: 20201228
  Transmission Date: 20210114
  Serious: Yes (Other)
  Sender: FDA-Public Use
  Company Number: GB-ASCEND THERAPEUTICS US, LLC-2103537

PATIENT
  Age: 48 Year
  Sex: Female
  Weight: 65 kg

DRUGS (3)
  1. ESTROGEL [Suspect]
     Active Substance: ESTRADIOL
     Indication: HORMONE REPLACEMENT THERAPY
     Route: 061
     Dates: start: 20200103, end: 20200302
  2. ESTRADIOL, NOS (ESTRADIOL) (UNKNOWN)?INDICATION FOR USE: HRT [Suspect]
     Active Substance: ESTRADIOL
     Route: 061
     Dates: start: 20200103, end: 20200302
  3. ESTROGEL [Suspect]
     Active Substance: ESTRADIOL

REACTIONS (3)
  - Menopausal symptoms [Recovered/Resolved]
  - Drug ineffective [Recovered/Resolved]
  - Product substitution issue [Unknown]

NARRATIVE: CASE EVENT DATE: 20200103
